FAERS Safety Report 18156637 (Version 1)
Quarter: 2020Q3

REPORT INFORMATION
  Report Type: Spontaneous
  Country: US (occurrence: US)
  Receive Date: 20200814
  Receipt Date: 20200814
  Transmission Date: 20201103
  Serious: No
  Sender: FDA-Public Use
  Company Number: None

PATIENT
  Sex: Female

DRUGS (1)
  1. HUMIRA [Suspect]
     Active Substance: ADALIMUMAB
     Indication: CROHN^S DISEASE
     Dosage: OTHER DOSE:40MD/0.8ML;?
     Route: 058
     Dates: start: 201808

REACTIONS (5)
  - Abdominal pain [None]
  - Lymphadenopathy [None]
  - Skin ulcer [None]
  - Unevaluable event [None]
  - Fatigue [None]
